FAERS Safety Report 16573259 (Version 1)
Quarter: 2019Q3

REPORT INFORMATION
  Report Type: Spontaneous
  Country: IT (occurrence: IT)
  Receive Date: 20190715
  Receipt Date: 20190715
  Transmission Date: 20191004
  Serious: Yes (Other)
  Sender: FDA-Public Use
  Company Number: IT-MYLANLABS-2019M1064999

PATIENT
  Age: 38 Year
  Sex: Female

DRUGS (1)
  1. LEVOFLOXACIN. [Suspect]
     Active Substance: LEVOFLOXACIN
     Indication: TRACHEITIS
     Dosage: 1 MILLIGRAM/KILOGRAM, QD
     Route: 048
     Dates: start: 20190108

REACTIONS (6)
  - Hypotension [Recovering/Resolving]
  - Tachycardia [Recovering/Resolving]
  - Chills [Recovering/Resolving]
  - Nausea [Recovering/Resolving]
  - Dysentery [Recovering/Resolving]
  - Dark circles under eyes [Recovering/Resolving]

NARRATIVE: CASE EVENT DATE: 20190108
